FAERS Safety Report 9912271 (Version 5)
Quarter: 2015Q1

REPORT INFORMATION
  Report Type: Report from Study
  Country: BR (occurrence: BR)
  Receive Date: 20140220
  Receipt Date: 20150220
  Transmission Date: 20150721
  Serious: Yes (Other)
  Sender: FDA-Public Use
  Company Number: BR-BIOGENIDEC-2013BI061893

PATIENT
  Age: 37 Year
  Sex: Female
  Weight: 52 kg

DRUGS (4)
  1. FOLIC ACID. [Concomitant]
     Active Substance: FOLIC ACID
     Dates: start: 201307
  2. AVONEX [Suspect]
     Active Substance: INTERFERON BETA-1A
     Indication: MULTIPLE SCLEROSIS
     Route: 030
     Dates: start: 20120719, end: 20130629
  3. BUSCOPAN [Concomitant]
     Active Substance: BUTYLSCOPOLAMINE BROMIDE
  4. FERROUS SULFATE [Concomitant]
     Active Substance: FERROUS SULFATE\FERROUS SULFATE, DRIED

REACTIONS (4)
  - Maternal exposure during pregnancy [Recovered/Resolved]
  - Epistaxis [Recovered/Resolved]
  - Haemorrhage in pregnancy [Recovered/Resolved]
  - Oligohydramnios [Recovered/Resolved]

NARRATIVE: CASE EVENT DATE: 20130829
